FAERS Safety Report 8616308 (Version 5)
Quarter: 2012Q4

REPORT INFORMATION
  Report Type: 
  Country: JP (occurrence: JP)
  Receive Date: 20120614
  Receipt Date: 20121012
  Transmission Date: 20130627
  Serious: Yes (Hospitalization)
  Sender: FDA-Public Use
  Company Number: JP-AMGEN-JPNCT2012036967

PATIENT
  Age: 50 Year
  Sex: Female
  Weight: 69 kg

DRUGS (16)
  1. ROMIPLOSTIM - KHK [Suspect]
     Indication: IDIOPATHIC THROMBOCYTOPENIC PURPURA
     Dosage: 1 mug/kg, qwk
     Route: 058
     Dates: start: 20110920, end: 20110927
  2. ROMIPLOSTIM - KHK [Suspect]
     Dosage: 0.7 mug/kg, qd
     Route: 058
     Dates: start: 20111006, end: 20111006
  3. ROMIPLOSTIM - KHK [Suspect]
     Dosage: 0.71 mug/kg, qwk
     Route: 058
     Dates: start: 20111012, end: 20111116
  4. ROMIPLOSTIM - KHK [Suspect]
     Dosage: 1 mug/kg, qwk
     Route: 058
     Dates: start: 20111124, end: 20120229
  5. ROMIPLOSTIM - KHK [Suspect]
     Dosage: 3.57 mug/kg, qwk
     Route: 058
     Dates: start: 20120207, end: 20120411
  6. ROMIPLOSTIM - KHK [Suspect]
     Dosage: 7.14 mug/kg, qwk
     Route: 058
     Dates: start: 20120418, end: 20120509
  7. ROMIPLOSTIM - KHK [Suspect]
     Dosage: 3.33 mug/kg, qwk
     Route: 058
     Dates: start: 20120517, end: 20120530
  8. PREDNISOLONE [Suspect]
     Indication: IDIOPATHIC THROMBOCYTOPENIC PURPURA
     Dosage: UNK
     Route: 048
     Dates: start: 20110827
  9. TAKEPRON [Concomitant]
     Indication: PROPHYLAXIS
     Route: 048
     Dates: start: 20120321
  10. MUCOSTA [Concomitant]
     Indication: PROPHYLAXIS
     Dosage: UNK
     Route: 048
     Dates: start: 20120321
  11. FOSAMAC [Concomitant]
     Indication: IDIOPATHIC THROMBOCYTOPENIC PURPURA
     Dosage: 35 mg, qd
     Route: 048
     Dates: start: 20120321
  12. ROZEREM [Concomitant]
     Indication: INSOMNIA
     Dosage: 8 mg, UNK
     Route: 048
     Dates: start: 20120516
  13. LENDORMIN [Concomitant]
     Indication: INSOMNIA
     Dosage: 0.25 mg, qd
     Route: 048
     Dates: start: 20120516
  14. PURSENNID [Concomitant]
     Dosage: UNK
     Route: 048
  15. CALONAL [Concomitant]
     Dosage: UNK
     Route: 048
  16. ALLEGRA [Concomitant]
     Indication: RHINITIS ALLERGIC
     Dosage: 60 mg, UNK
     Route: 048
     Dates: start: 20120321, end: 20120509

REACTIONS (7)
  - Acute myocardial infarction [Recovering/Resolving]
  - Platelet count decreased [Recovering/Resolving]
  - Type 2 diabetes mellitus [Recovering/Resolving]
  - Rhinitis allergic [Recovered/Resolved]
  - Neutrophil count increased [Not Recovered/Not Resolved]
  - Headache [Unknown]
  - Insomnia [Recovered/Resolved]
